FAERS Safety Report 13178996 (Version 5)
Quarter: 2017Q1

REPORT INFORMATION
  Report Type: Report from Study
  Country: CA (occurrence: CA)
  Receive Date: 20170202
  Receipt Date: 20170330
  Transmission Date: 20170428
  Serious: Yes (Other)
  Sender: FDA-Public Use
  Company Number: CA-VIIV HEALTHCARE LIMITED-CA2017GSK011563

PATIENT
  Age: 29 Year
  Sex: Male
  Weight: 75.7 kg

DRUGS (4)
  1. GHB (GAMMA-HYDROXYBUTYRIC ACID) [Concomitant]
  2. DOLUTEGRAVIR [Suspect]
     Active Substance: DOLUTEGRAVIR
     Indication: HIV INFECTION
     Dosage: UNK
     Dates: start: 20161229, end: 20170105
  3. LAMIVUDINE. [Suspect]
     Active Substance: LAMIVUDINE
     Indication: HIV INFECTION
     Dosage: UNK
     Dates: start: 20161229, end: 20170107
  4. CRYSTAL METH [Suspect]
     Active Substance: METHAMPHETAMINE

REACTIONS (1)
  - Psychotic disorder [Recovered/Resolved]

NARRATIVE: CASE EVENT DATE: 20161229
